FAERS Safety Report 7521457-3 (Version None)
Quarter: 2011Q2

REPORT INFORMATION
  Report Type: 
  Country: None (occurrence: None)
  Receive Date: 20110603
  Receipt Date: 20110513
  Transmission Date: 20111010
  Serious: Yes (Hospitalization)
  Sender: FDA-Public Use
  Company Number: US-BAYER-201022811NA

PATIENT
  Age: 62 Year
  Sex: Male
  Weight: 95 kg

DRUGS (13)
  1. PROCHLORPERAZINE TAB [Concomitant]
  2. MONOCLONAL ANTIBODIES [Suspect]
     Indication: HEPATIC NEOPLASM MALIGNANT
     Dosage: ON DAY 1 OF EACH 3 WEEK CYCLE
     Route: 042
     Dates: start: 20100322
  3. NADOLOL [Concomitant]
  4. LISINOPRIL [Concomitant]
  5. PARACETAMOL WITH CODEINE PHOSPHATE [Concomitant]
  6. INDAPAMIDE [Concomitant]
  7. SORAFENIB (RAF KINASE INHIBITOR) [Suspect]
     Indication: HEPATIC NEOPLASM MALIGNANT
     Dosage: ON DAYS 1-21 OF EACH CYLE
     Route: 048
     Dates: start: 20100322, end: 20100405
  8. METFORMIN HCL [Concomitant]
  9. ROBITUSSIN AC [CODEINE PHOSPHATE,GUAIFENESIN] [Concomitant]
  10. ZETIA [Concomitant]
  11. ZOFRAN [Concomitant]
  12. NORVASC [Concomitant]
  13. AMBIEN [Concomitant]

REACTIONS (1)
  - GASTROINTESTINAL HAEMORRHAGE [None]
